FAERS Safety Report 7679657-8 (Version None)
Quarter: 2011Q3

REPORT INFORMATION
  Report Type: 
  Country: None (occurrence: None)
  Receive Date: 20110809
  Receipt Date: 20110728
  Transmission Date: 20111222
  Serious: Yes (Hospitalization)
  Sender: FDA-Public Use
  Company Number: TCI2011A04192

PATIENT
  Age: 66 Year
  Sex: Male

DRUGS (12)
  1. OLMESARTAN MEDOXOMIL [Concomitant]
  2. TAMSULOSIN HCL [Concomitant]
  3. SEREVENT [Concomitant]
  4. LENDORM [Concomitant]
  5. ACTOS [Suspect]
     Indication: DIABETES MELLITUS
     Dosage: 15 MG (15 MG,1 IN 1 D) PER ORAL : 30 MG (30 MG,1 IN 1 D) PER ORAL
     Route: 048
     Dates: start: 20070219, end: 20110719
  6. ACTOS [Suspect]
     Indication: DIABETES MELLITUS
     Dosage: 15 MG (15 MG,1 IN 1 D) PER ORAL : 30 MG (30 MG,1 IN 1 D) PER ORAL
     Route: 048
     Dates: start: 20061002, end: 20070218
  7. METFORMIN HYDROCHLORIDE [Concomitant]
  8. AMARYL [Concomitant]
  9. SINGULAIR [Concomitant]
  10. BASEN(VOGLIBOSE) [Concomitant]
  11. ADALAT [Concomitant]
  12. ALVESCO [Concomitant]

REACTIONS (1)
  - BLADDER TRANSITIONAL CELL CARCINOMA [None]
